FAERS Safety Report 10189109 (Version 2)
Quarter: 2014Q2

REPORT INFORMATION
  Report Type: Spontaneous
  Country: FR (occurrence: FR)
  Receive Date: 20140522
  Receipt Date: 20140602
  Transmission Date: 20141212
  Serious: Yes (Hospitalization, Other)
  Sender: FDA-Public Use
  Company Number: FR-PFIZER INC-2014135642

PATIENT
  Age: 64 Year
  Sex: Male

DRUGS (10)
  1. MEDROL [Suspect]
     Dosage: 100 MG, DAILY
     Dates: start: 20140420, end: 201404
  2. MEDROL [Suspect]
     Dosage: 50 MG, DAILY
     Dates: start: 201404
  3. KEPPRA [Suspect]
     Dosage: 500 MG, 2X/DAY
     Dates: start: 20140409
  4. INEXIUM [Suspect]
     Dosage: 40 MG, DAILY
     Dates: start: 20140422
  5. TEMERIT [Concomitant]
     Dosage: 5 MG, DAILY
  6. EXFORGE [Concomitant]
  7. ALDACTAZINE [Concomitant]
  8. CRESTOR [Concomitant]
  9. KARDEGIC [Concomitant]
  10. AUGMENTIN [Concomitant]
     Dosage: 2 G, 3X/DAY
     Dates: start: 20140409, end: 20140417

REACTIONS (3)
  - Hepatocellular injury [Unknown]
  - Cholestasis [Unknown]
  - Jaundice [Unknown]
